FAERS Safety Report 21118738 (Version 2)
Quarter: 2022Q4

REPORT INFORMATION
  Report Type: Spontaneous
  Country: DE (occurrence: DE)
  Receive Date: 20220722
  Receipt Date: 20221230
  Transmission Date: 20230113
  Serious: Yes (Hospitalization, Other)
  Sender: FDA-Public Use
  Company Number: DE-SUN PHARMACEUTICAL INDUSTRIES LTD-2022RR-345699

PATIENT
  Sex: Male
  Weight: 118 kg

DRUGS (11)
  1. RAMIPRIL [Suspect]
     Active Substance: RAMIPRIL
     Indication: Product used for unknown indication
     Dosage: 5 MILLIGRAM, DAILY, 2.5 MG, BID (1-0-1)
     Route: 065
  2. SIMVASTATIN [Suspect]
     Active Substance: SIMVASTATIN
     Indication: Product used for unknown indication
     Dosage: 20 MG, QD (0-0-1)
     Route: 065
  3. TAMSULOSIN [Suspect]
     Active Substance: TAMSULOSIN
     Indication: Product used for unknown indication
     Dosage: 0.4 MILLIGRAM, DAILY
     Route: 065
  4. COSENTYX [Suspect]
     Active Substance: SECUKINUMAB
     Indication: Psoriasis
     Dosage: 300 MG, QMO
     Route: 065
     Dates: start: 20160112
  5. COSENTYX [Suspect]
     Active Substance: SECUKINUMAB
     Indication: Psoriatic arthropathy
  6. ASPIRIN [Suspect]
     Active Substance: ASPIRIN
     Indication: Product used for unknown indication
     Dosage: 100 MG, QD (1-0-0)
     Route: 065
  7. TICAGRELOR [Concomitant]
     Active Substance: TICAGRELOR
     Indication: Product used for unknown indication
     Dosage: UNK, BID (1-0-1)
     Route: 065
  8. ATORVASTATIN [Concomitant]
     Active Substance: ATORVASTATIN
     Indication: Product used for unknown indication
     Dosage: UNK UNK, QD (0-0-1)
     Route: 065
  9. PANTOPRAZOLE [Concomitant]
     Active Substance: PANTOPRAZOLE
     Indication: Product used for unknown indication
     Dosage: UNK UNK, QD (1-0-0)
     Route: 065
  10. BISOPROLOL [Concomitant]
     Active Substance: BISOPROLOL
     Indication: Product used for unknown indication
     Dosage: UNK UNK, QD (1-0-0)
     Route: 065
  11. CANDESARTAN [Concomitant]
     Active Substance: CANDESARTAN
     Indication: Product used for unknown indication
     Dosage: UNK UNK, BID (1-0-1)
     Route: 065

REACTIONS (27)
  - Hepatic steatosis [Recovered/Resolved]
  - Pancreatitis acute [Recovered/Resolved]
  - Acute myocardial infarction [Recovered/Resolved]
  - Thrombosis [Unknown]
  - Blood glucose increased [Unknown]
  - Benign prostatic hyperplasia [Unknown]
  - Blood creatinine increased [Recovered/Resolved]
  - Obesity [Unknown]
  - Red blood cell count decreased [Unknown]
  - Haematocrit decreased [Unknown]
  - Renal cyst [Unknown]
  - Chest discomfort [Unknown]
  - Lipase increased [Unknown]
  - General physical health deterioration [Unknown]
  - Haemoglobin decreased [Unknown]
  - White blood cell count increased [Recovered/Resolved]
  - Abdominal pain upper [Unknown]
  - C-reactive protein increased [Unknown]
  - Haematochezia [Recovered/Resolved]
  - Chronic coronary syndrome [Not Recovered/Not Resolved]
  - Coronary artery stenosis [Recovered/Resolved]
  - Renal cyst [Unknown]
  - Haemorrhoids [Recovered/Resolved]
  - Hiatus hernia [Recovered/Resolved]
  - Gastrooesophageal reflux disease [Recovered/Resolved]
  - Diverticulum intestinal haemorrhagic [Recovered/Resolved]
  - Myocardial infarction [Recovered/Resolved]

NARRATIVE: CASE EVENT DATE: 20200601
